FAERS Safety Report 7958115-7 (Version None)
Quarter: 2011Q4

REPORT INFORMATION
  Report Type: 
  Country: None (occurrence: None)
  Receive Date: 20111205
  Receipt Date: 20111201
  Transmission Date: 20120403
  Serious: Yes (Hospitalization)
  Sender: FDA-Public Use
  Company Number: FR-PFIZER INC-2011293239

PATIENT
  Age: 39 Year
  Sex: Male

DRUGS (3)
  1. OXYCONTIN [Concomitant]
     Dosage: UNK
  2. LYRICA [Suspect]
     Indication: PAIN
     Dosage: UNK
     Route: 048
     Dates: end: 20110621
  3. SOLU-MEDROL [Concomitant]
     Dosage: UNK

REACTIONS (2)
  - NEUTROPENIA [None]
  - THROMBOCYTOPENIA [None]
